FAERS Safety Report 9952762 (Version 1)
Quarter: 2014Q1

REPORT INFORMATION
  Report Type: Spontaneous
  Country: US (occurrence: US)
  Receive Date: 20140304
  Receipt Date: 20140304
  Transmission Date: 20141002
  Serious: Yes (Other)
  Sender: FDA-Public Use
  Company Number: US-AMGEN-USASP2014004946

PATIENT
  Age: 44 Year
  Sex: Female

DRUGS (1)
  1. ENBREL [Suspect]
     Indication: RHEUMATOID ARTHRITIS
     Dosage: UNK
     Route: 058

REACTIONS (8)
  - Staphylococcal infection [Unknown]
  - Sinusitis [Not Recovered/Not Resolved]
  - Nasopharyngitis [Unknown]
  - Increased tendency to bruise [Unknown]
  - Scar [Unknown]
  - Skin discolouration [Unknown]
  - Nasal congestion [Not Recovered/Not Resolved]
  - Nasal discharge discolouration [Unknown]
